FAERS Safety Report 5032379-4 (Version None)
Quarter: 2006Q2

REPORT INFORMATION
  Report Type: 
  Country: None (occurrence: None)
  Receive Date: 20060508
  Receipt Date: 20050329
  Transmission Date: 20061013
  Serious: Yes (Other)
  Sender: FDA-Public Use
  Company Number: 231175K05USA

PATIENT
  Age: 49 Year
  Sex: Female
  Weight: 45.3597 kg

DRUGS (1)
  1. REBIF [Suspect]
     Indication: MULTIPLE SCLEROSIS
     Dosage: 22 MCG, 3 IN 1 WEEKS, SUBCUTANEOUS
     Route: 058
     Dates: start: 20041018, end: 20050323

REACTIONS (7)
  - HEADACHE [None]
  - HEPATIC ENZYME INCREASED [None]
  - PAIN [None]
  - PNEUMONIA [None]
  - PRURITUS GENERALISED [None]
  - PYREXIA [None]
  - URTICARIA [None]
